FAERS Safety Report 6330520-4 (Version None)
Quarter: 2009Q3

REPORT INFORMATION
  Report Type: 
  Country: None (occurrence: None)
  Receive Date: 20090827
  Receipt Date: 20090319
  Transmission Date: 20100115
  Serious: No
  Sender: FDA-Public Use
  Company Number: A0774343A

PATIENT
  Age: 63 Year
  Sex: Male

DRUGS (3)
  1. ACYCLOVIR [Suspect]
     Dosage: 800MG FIVE TIMES PER DAY
     Route: 048
     Dates: start: 20090310
  2. TETRAHYDROCANNABINOL [Suspect]
     Dates: start: 20090310, end: 20090312
  3. NO CONCURRENT MEDICATION [Concomitant]

REACTIONS (4)
  - ABNORMAL DREAMS [None]
  - ANXIETY [None]
  - FATIGUE [None]
  - NIGHT SWEATS [None]
